FAERS Safety Report 13393401 (Version 1)
Quarter: 2017Q1

REPORT INFORMATION
  Report Type: Spontaneous
  Country: US (occurrence: US)
  Receive Date: 20170331
  Receipt Date: 20170331
  Transmission Date: 20170429
  Serious: No
  Sender: FDA-Public Use
  Company Number: US-SEPTODONT-201603538

PATIENT
  Sex: Female

DRUGS (3)
  1. SEPTOCAINE AND EPINEPHRINE [Concomitant]
     Active Substance: ARTICAINE HYDROCHLORIDE\EPINEPHRINE BITARTRATE
     Indication: LOCAL ANAESTHESIA
     Dosage: USED 30G SHORT MONOJECT NEEDLE TO INJECT IN HEALTHY TISSUE
     Route: 002
  2. ORAVERSE [Suspect]
     Active Substance: PHENTOLAMINE MESYLATE
     Indication: ANAESTHESIA REVERSAL
     Dosage: USED 30G SHORT MONOJECT NEEDLE TO INJECT IN HEALTHY TISSUE
     Route: 004
  3. LIDOCAINE HYDROCHLORIDE 2% WITH EPINEPHRINE 1:100,000 INJECTION [Concomitant]
     Active Substance: EPINEPHRINE\LIDOCAINE HYDROCHLORIDE
     Indication: LOCAL ANAESTHESIA
     Dosage: IAN BLOCK IN HEALTHY TISSUE WITH 30G SHORT MONOJECT NEEDLE
     Route: 004

REACTIONS (2)
  - Injection site pain [Recovering/Resolving]
  - Swelling face [Recovering/Resolving]
